FAERS Safety Report 13502479 (Version 5)
Quarter: 2018Q2

REPORT INFORMATION
  Report Type: Report from Study
  Country: CO (occurrence: CO)
  Receive Date: 20170502
  Receipt Date: 20180413
  Transmission Date: 20180711
  Serious: Yes (Other)
  Sender: FDA-Public Use
  Company Number: CO-AMGEN-COLSL2017064150

PATIENT
  Age: 40 Year
  Sex: Male

DRUGS (2)
  1. XGEVA [Suspect]
     Active Substance: DENOSUMAB
     Indication: BONE DISORDER
  2. XGEVA [Suspect]
     Active Substance: DENOSUMAB
     Indication: PROPHYLAXIS
     Dosage: 120 MG, QMO
     Route: 058
     Dates: start: 20161019

REACTIONS (12)
  - Bone pain [Not Recovered/Not Resolved]
  - Inflammation [Not Recovered/Not Resolved]
  - Body temperature fluctuation [Not Recovered/Not Resolved]
  - Muscle spasms [Not Recovered/Not Resolved]
  - Abscess limb [Not Recovered/Not Resolved]
  - Palpitations [Not Recovered/Not Resolved]
  - Oedema peripheral [Recovered/Resolved]
  - Arthralgia [Not Recovered/Not Resolved]
  - Wound [Not Recovered/Not Resolved]
  - Pain in extremity [Not Recovered/Not Resolved]
  - Nail-patella syndrome [Not Recovered/Not Resolved]
  - Product storage error [Recovered/Resolved]

NARRATIVE: CASE EVENT DATE: 20170725
